FAERS Safety Report 7946876-2 (Version None)
Quarter: 2011Q4

REPORT INFORMATION
  Report Type: 
  Country: None (occurrence: None)
  Receive Date: 20111129
  Receipt Date: 20111121
  Transmission Date: 20120403
  Serious: Yes (Other)
  Sender: FDA-Public Use
  Company Number: PHHY2011US47816

PATIENT
  Sex: Female
  Weight: 31 kg

DRUGS (4)
  1. ILARIS [Suspect]
     Indication: FAMILIAL COLD AUTOINFLAMMATORY SYNDROME
     Dosage: 75 MG EVERY 8 WEEKS
     Route: 058
  2. ILARIS [Suspect]
     Indication: CRYOPYRIN ASSOCIATED PERIODIC SYNDROME
  3. ANTIBIOTICS [Concomitant]
  4. ILARIS [Suspect]
     Indication: URTICARIA
     Dosage: 90 MG, EVERY 8 WEEKS
     Route: 058
     Dates: start: 20090916

REACTIONS (1)
  - URINARY TRACT INFECTION [None]
